FAERS Safety Report 25439397 (Version 1)
Quarter: 2025Q2

REPORT INFORMATION
  Report Type: Spontaneous
  Country: CN (occurrence: CN)
  Receive Date: 20250616
  Receipt Date: 20250616
  Transmission Date: 20250716
  Serious: Yes (Other)
  Sender: ALEXION PHARMACEUTICALS
  Company Number: CN-ASTRAZENECA-202506CHN010428CN

PATIENT
  Age: 59 Year
  Weight: 59 kg

DRUGS (4)
  1. DURVALUMAB [Suspect]
     Active Substance: DURVALUMAB
     Indication: Lung neoplasm malignant
     Dosage: 600 MILLIGRAM, Q2W
  2. LURBINECTEDIN [Suspect]
     Active Substance: LURBINECTEDIN
     Indication: Lung neoplasm malignant
     Dosage: 300 MILLIGRAM, Q3W
  3. SODIUM CHLORIDE [Concomitant]
     Active Substance: SODIUM CHLORIDE
     Indication: Vehicle solution use
     Dosage: 250 MILLILITER, Q2W
  4. SODIUM CHLORIDE [Concomitant]
     Active Substance: SODIUM CHLORIDE
     Dosage: 250 MILLILITER, Q3W

REACTIONS (1)
  - Myelosuppression [Recovering/Resolving]
